FAERS Safety Report 9765616 (Version 2)
Quarter: 2014Q1

REPORT INFORMATION
  Report Type: Spontaneous
  Country: US (occurrence: US)
  Receive Date: 20131217
  Receipt Date: 20140326
  Transmission Date: 20141002
  Serious: No
  Sender: FDA-Public Use
  Company Number: US-BIOGENIDEC-2013BI114844

PATIENT
  Age: 52 Year
  Sex: Female
  Weight: 97 kg

DRUGS (14)
  1. TECFIDERA [Suspect]
     Indication: MULTIPLE SCLEROSIS
     Route: 048
  2. TECFIDERA [Suspect]
     Indication: MULTIPLE SCLEROSIS
     Route: 048
     Dates: end: 20131127
  3. TECFIDERA [Suspect]
     Indication: MULTIPLE SCLEROSIS
     Dates: start: 20131111, end: 20131211
  4. AVONEX [Concomitant]
     Indication: MULTIPLE SCLEROSIS
     Route: 030
     Dates: start: 20070129
  5. MACROBID [Concomitant]
     Route: 048
  6. VITAMIN D [Concomitant]
     Route: 048
  7. ASPIRIN EC [Concomitant]
     Route: 048
  8. LEVOTHYROXIN [Concomitant]
     Route: 048
  9. LISINOPRIL [Concomitant]
     Route: 048
  10. NORTRIPTYLIN [Concomitant]
     Route: 048
  11. TIMOLOL MAL SOL [Concomitant]
     Route: 047
  12. AZELASTINE [Concomitant]
  13. NEXIUM [Concomitant]
     Route: 048
  14. SEROQUEL [Concomitant]

REACTIONS (15)
  - Urinary tract infection [Unknown]
  - Muscle spasms [Unknown]
  - Blood potassium decreased [Unknown]
  - Blood magnesium decreased [Unknown]
  - Adverse event [Unknown]
  - Migraine [Unknown]
  - Dysphemia [Unknown]
  - Drug withdrawal syndrome [Unknown]
  - Gastric disorder [Recovered/Resolved with Sequelae]
  - Liver injury [Not Recovered/Not Resolved]
  - Hepatic enzyme increased [Unknown]
  - Nausea [Unknown]
  - Diarrhoea [Recovered/Resolved with Sequelae]
  - Vomiting [Recovered/Resolved with Sequelae]
  - White blood cell count decreased [Unknown]
